FAERS Safety Report 4666299-1 (Version None)
Quarter: 2005Q2

REPORT INFORMATION
  Report Type: 
  Country: None (occurrence: None)
  Receive Date: 20050518
  Receipt Date: 20050502
  Transmission Date: 20051028
  Serious: Yes (Hospitalization)
  Sender: FDA-Public Use
  Company Number: 2005069223

PATIENT
  Age: 49 Year
  Sex: Male

DRUGS (6)
  1. DOXORUBICIN HCL [Suspect]
     Indication: THYMOMA
     Dosage: 50 MG/M2 (DAY 1),
  2. CISPLATIN [Suspect]
     Indication: THYMOMA
     Dosage: 100 MG/M2 (DAY 1), INTRAVENOUS
     Route: 042
  3. ETOPOSIDE [Suspect]
     Indication: THYMOMA
     Dosage: 120 MG/M2 (DAYS 1, 3 AND 5),
  4. ONDANSETRON HCL [Concomitant]
  5. METOCLOPRAMIDE [Concomitant]
  6. DEXAMETHASONE [Concomitant]

REACTIONS (7)
  - ASTHENIA [None]
  - LYMPHADENOPATHY MEDIASTINAL [None]
  - MYASTHENIA GRAVIS CRISIS [None]
  - NERVOUS SYSTEM DISORDER [None]
  - RADIATION PNEUMONITIS [None]
  - RESPIRATORY FAILURE [None]
  - STAPHYLOCOCCAL INFECTION [None]
